FAERS Safety Report 9352529 (Version 1)
Quarter: 2013Q2

REPORT INFORMATION
  Report Type: Report from Study
  Country: MX (occurrence: MX)
  Receive Date: 20130618
  Receipt Date: 20130618
  Transmission Date: 20140414
  Serious: Yes (Death, Hospitalization)
  Sender: FDA-Public Use
  Company Number: MX-BRISTOL-MYERS SQUIBB COMPANY-16572646

PATIENT
  Age: 85 Year
  Sex: Female

DRUGS (4)
  1. APIXABAN [Suspect]
     Indication: THROMBOSIS PROPHYLAXIS
     Route: 048
     Dates: start: 20090417
  2. LEVOTHYROXINE [Concomitant]
     Dates: start: 20111007
  3. DIGOXIN [Concomitant]
     Dates: start: 1995
  4. FUROSEMIDE [Concomitant]
     Dates: start: 20120314

REACTIONS (2)
  - Death [Fatal]
  - Ascites [Recovered/Resolved]
